FAERS Safety Report 8881879 (Version 3)
Quarter: 2012Q4

REPORT INFORMATION
  Report Type: 
  Country: US (occurrence: US)
  Receive Date: 20121101
  Receipt Date: 20121213
  Transmission Date: 20130627
  Serious: Yes (Other)
  Sender: FDA-Public Use
  Company Number: US-PFIZER INC-2012269277

PATIENT
  Age: 48 Year
  Sex: Female
  Weight: 95 kg

DRUGS (8)
  1. LYRICA [Suspect]
     Indication: FIBROMYALGIA
     Dosage: 150 mg, 1x/day
     Route: 048
     Dates: start: 20110111
  2. LYRICA [Suspect]
     Indication: PAIN
     Dosage: 150 mg daily (QD)
     Route: 048
     Dates: start: 20120904, end: 20121004
  3. CYMBALTA [Concomitant]
     Indication: FIBROMYALGIA
     Dosage: 90mg daily (QD)
     Dates: start: 201107
  4. PROPRANOLOL [Concomitant]
     Indication: LEG CRAMPS
     Dosage: 3 mg, 1x/day
     Dates: start: 2011
  5. PRILOSEC [Concomitant]
     Dosage: 20 mg, QD
  6. RESTORIL [Concomitant]
     Indication: SLEEP DISORDER
     Dosage: 30mg at night (qhs)
     Route: 048
     Dates: start: 201210
  7. ROPINIROLE [Concomitant]
     Indication: RESTLESS LEG SYNDROME
     Dosage: 1.5mg at night (QHS)
     Route: 048
     Dates: start: 201206
  8. NORCO [Concomitant]
     Indication: OSTEOARTHRITIS
     Dosage: [hydrocodone bitartrate 10 tab(10)]/ [paracetamol 1 tab(325)],  PRN three times a day (TID)
     Route: 048

REACTIONS (6)
  - Dyspnoea [Recovered/Resolved]
  - Fatigue [Recovered/Resolved]
  - Musculoskeletal stiffness [Not Recovered/Not Resolved]
  - Decreased interest [Unknown]
  - Stress [Not Recovered/Not Resolved]
  - Listless [Not Recovered/Not Resolved]
